FAERS Safety Report 16819528 (Version 2)
Quarter: 2019Q3

REPORT INFORMATION
  Report Type: Report from Study
  Country: None (occurrence: CH)
  Receive Date: 20190917
  Receipt Date: 20190926
  Transmission Date: 20191005
  Serious: Yes (Hospitalization)
  Sender: FDA-Public Use
  Company Number: CH-ABBVIE-19P-151-2917273-00

PATIENT
  Age: 74 Year
  Sex: Male
  Weight: 82 kg

DRUGS (10)
  1. PREDNISOLONE. [Suspect]
     Active Substance: PREDNISOLONE
     Indication: TEMPORAL ARTERITIS
     Route: 048
     Dates: start: 20190529, end: 20190906
  2. SPIRIVA [Concomitant]
     Active Substance: TIOTROPIUM BROMIDE MONOHYDRATE
     Indication: CHRONIC OBSTRUCTIVE PULMONARY DISEASE
     Route: 055
     Dates: start: 20190314
  3. UPADACITINIB [Suspect]
     Active Substance: UPADACITINIB
     Route: 048
     Dates: start: 20190912
  4. CHININSULFAT HAENSELER [Concomitant]
     Active Substance: QUININE SULFATE
     Indication: MUSCLE SPASMS
     Route: 048
     Dates: start: 201706
  5. CALCIMAGON D3 FORTE [Concomitant]
     Indication: OSTEOPOROSIS PROPHYLAXIS
     Route: 048
     Dates: start: 20190520
  6. PERINDOPRIL AMLODIPIN MEPHA [Concomitant]
     Indication: HYPERTENSION
     Dosage: 5/10 MG
     Route: 048
     Dates: start: 201802
  7. UPADACITINIB [Suspect]
     Active Substance: UPADACITINIB
     Indication: TEMPORAL ARTERITIS
     Route: 048
     Dates: start: 20190528, end: 20190906
  8. PREDNISOLONE. [Suspect]
     Active Substance: PREDNISOLONE
     Route: 048
     Dates: start: 20190909
  9. ASPIRIN CARDIO [Concomitant]
     Active Substance: ASPIRIN
     Indication: TEMPORAL ARTERITIS
     Route: 048
     Dates: start: 20190418
  10. PANTOZOL [Concomitant]
     Active Substance: PANTOPRAZOLE SODIUM
     Indication: PROPHYLAXIS
     Route: 048
     Dates: start: 20190501

REACTIONS (1)
  - Genitourinary tract infection [Not Recovered/Not Resolved]

NARRATIVE: CASE EVENT DATE: 20190904
